FAERS Safety Report 23161217 (Version 1)
Quarter: 2023Q4

REPORT INFORMATION
  Report Type: Report from Study
  Country: CA (occurrence: CA)
  Receive Date: 20231108
  Receipt Date: 20231108
  Transmission Date: 20240110
  Serious: Yes (Other)
  Sender: FDA-Public Use
  Company Number: CA-HLS-202302499

PATIENT
  Sex: Female

DRUGS (2)
  1. CLOZARIL [Suspect]
     Active Substance: CLOZAPINE
     Indication: Product used for unknown indication
     Route: 048
     Dates: start: 20160627
  2. CLOZAPINE [Suspect]
     Active Substance: CLOZAPINE
     Indication: Psychotic disorder
     Dosage: TAKE 0.75 ML(S) (=18.75 MG) TWICE A DAY (START DATE 03-NOV-2023)
     Route: 065

REACTIONS (9)
  - Anaemia [Unknown]
  - Neuropsychological symptoms [Unknown]
  - COVID-19 [Recovered/Resolved]
  - Dementia [Unknown]
  - Shoulder fracture [Unknown]
  - Guillain-Barre syndrome [Unknown]
  - Hypertension [Unknown]
  - Product dispensing error [Unknown]
  - Parathyroid disorder [Unknown]
